FAERS Safety Report 11722797 (Version 1)
Quarter: 2015Q4

REPORT INFORMATION
  Report Type: Spontaneous
  Country: US (occurrence: None)
  Receive Date: 20151110
  Receipt Date: 20151110
  Transmission Date: 20160304
  Serious: Yes (Disabling)
  Sender: FDA-Public Use
  Company Number: None

PATIENT
  Age: 32 Year
  Sex: Female
  Weight: 56.7 kg

DRUGS (1)
  1. PRISTIQ EXTENDED-RELEASE [Suspect]
     Active Substance: DESVENLAFAXINE SUCCINATE
     Indication: DEPRESSION
     Dosage: 1 PILL
     Route: 048
     Dates: start: 20140601, end: 20151105

REACTIONS (14)
  - Crying [None]
  - Vaginal haemorrhage [None]
  - Drug ineffective [None]
  - Chills [None]
  - Self-injurious ideation [None]
  - Paraesthesia [None]
  - Cold sweat [None]
  - Migraine [None]
  - Fatigue [None]
  - Sleep terror [None]
  - Headache [None]
  - Mood swings [None]
  - Nightmare [None]
  - Pain [None]

NARRATIVE: CASE EVENT DATE: 20151105
